FAERS Safety Report 6482956-9 (Version None)
Quarter: 2009Q4

REPORT INFORMATION
  Report Type: 
  Country: None (occurrence: None)
  Receive Date: 20091209
  Receipt Date: 20091120
  Transmission Date: 20100525
  Serious: Yes (Life-Threatening, Other)
  Sender: FDA-Public Use
  Company Number: US-SANOFI-AVENTIS-200919497US

PATIENT
  Age: 57 Year
  Sex: Female
  Weight: 80.74 kg

DRUGS (10)
  1. LEFLUNOMIDE [Suspect]
     Indication: RHEUMATOID ARTHRITIS
     Route: 048
     Dates: start: 20070101, end: 20090713
  2. LIPITOR [Concomitant]
     Dosage: DOSE AS USED: 10 MG QOD
     Dates: start: 20050101
  3. TRAMADOL HCL [Concomitant]
     Dosage: 50 MG- RARE
     Dates: start: 20060804
  4. NASAL SPRAY [Concomitant]
     Dosage: DOSE AS USED: UNK
  5. MULTI-VITAMINS [Concomitant]
     Dosage: 1 PER DAY
  6. CALCIUM [Concomitant]
     Dosage: DOSE AS USED: UNK
  7. PARACETAMOL [Concomitant]
     Dosage: DOSE AS USED: UNK
  8. SOLARAZE [Concomitant]
     Dosage: DOSE AS USED: UNK
  9. TUMS [Concomitant]
     Dosage: DOSE AS USED: UNK
  10. DICLOFENAC [Concomitant]
     Indication: RHEUMATOID ARTHRITIS
     Dosage: TAKES IT RARELY
     Dates: start: 20080103

REACTIONS (12)
  - CRANIAL NERVE PARALYSIS [None]
  - DIPLOPIA [None]
  - DRUG INEFFECTIVE [None]
  - EXTRAOCULAR MUSCLE PARESIS [None]
  - EYELID DISORDER [None]
  - IDIOPATHIC THROMBOCYTOPENIC PURPURA [None]
  - MYASTHENIA GRAVIS [None]
  - PLATELET COUNT DECREASED [None]
  - PYREXIA [None]
  - SPLENOMEGALY [None]
  - THYROID FUNCTION TEST ABNORMAL [None]
  - VISUAL ACUITY REDUCED [None]
